FAERS Safety Report 6578080-7 (Version None)
Quarter: 2010Q1

REPORT INFORMATION
  Report Type: 
  Country: None (occurrence: None)
  Receive Date: 20100211
  Receipt Date: 20100203
  Transmission Date: 20100710
  Serious: Yes (Other)
  Sender: FDA-Public Use
  Company Number: US-BAYER-201011291BCC

PATIENT
  Age: 22 Year
  Sex: Female
  Weight: 54 kg

DRUGS (3)
  1. MIDOL [Suspect]
     Indication: DYSMENORRHOEA
     Route: 048
  2. MIDOL [Suspect]
     Dosage: TOTAL DAILY DOSE: 2 DF  UNIT DOSE: 2 DF
     Route: 048
     Dates: start: 20100203
  3. DOXYCYCLINE [Concomitant]
     Route: 065

REACTIONS (5)
  - ANXIETY [None]
  - FEELING JITTERY [None]
  - MUSCLE TIGHTNESS [None]
  - NERVOUSNESS [None]
  - PANIC ATTACK [None]
